FAERS Safety Report 8152664-7 (Version None)
Quarter: 2012Q1

REPORT INFORMATION
  Report Type: 
  Country: None (occurrence: None)
  Receive Date: 20120221
  Receipt Date: 20120210
  Transmission Date: 20120608
  Serious: Yes (Other)
  Sender: FDA-Public Use
  Company Number: PHHY2012US011789

PATIENT
  Age: 48 Year
  Sex: Female

DRUGS (11)
  1. NAPROXEN SODIUM [Concomitant]
     Dosage: 550 MG, BID
  2. MEFLOQUINE HYDROCHLORIDE [Suspect]
     Dosage: 250 MG, ONCE/SINGLE
     Dates: start: 20110727
  3. MEFLOQUINE HYDROCHLORIDE [Suspect]
     Dosage: 250 MG, ONCE/SINGLE
     Dates: start: 20110803
  4. ESOMEPRAZOLE MAGNESIUM [Concomitant]
     Dosage: 40 MG, DAILY
  5. MEFLOQUINE HYDROCHLORIDE [Suspect]
     Dosage: 250 MG, ONCE/SINGLE
     Dates: start: 20110809
  6. GABAPENTIN [Concomitant]
     Dosage: 300 MG, UNK
  7. ZOLPIDEM TARTRATE [Concomitant]
     Dosage: 10 MG, QHS
  8. ACETAMINOPHEN AND OXYCODONE HCL [Concomitant]
     Dosage: 2 DF, QHS AS NEEDED
  9. MEFLOQUINE HYDROCHLORIDE [Suspect]
     Indication: MALARIA PROPHYLAXIS
     Dosage: 250 MG, ONCE/SINGLE
     Dates: start: 20110720
  10. IBUPROFEN [Concomitant]
     Dosage: 600 MG, TID
  11. GABAPENTIN [Concomitant]
     Dosage: 600 MG, TID

REACTIONS (13)
  - FACIAL PAIN [None]
  - ALLODYNIA [None]
  - DRUG HYPERSENSITIVITY [None]
  - PAIN IN EXTREMITY [None]
  - INSOMNIA [None]
  - POLYNEUROPATHY [None]
  - BURNING SENSATION [None]
  - NECK PAIN [None]
  - PARAESTHESIA [None]
  - HYPOAESTHESIA [None]
  - NEUROPATHY PERIPHERAL [None]
  - PYREXIA [None]
  - DEPRESSION [None]
